FAERS Safety Report 19494207 (Version 1)
Quarter: 2021Q3

REPORT INFORMATION
  Report Type: Spontaneous
  Country: FR (occurrence: FR)
  Receive Date: 20210706
  Receipt Date: 20210706
  Transmission Date: 20211014
  Serious: Yes (Hospitalization)
  Sender: FDA-Public Use
  Company Number: FR-ETHYPHARM-2021000965

PATIENT
  Age: 32 Year
  Sex: Male

DRUGS (3)
  1. BUPRENORPHINE. [Suspect]
     Active Substance: BUPRENORPHINE
     Route: 042
     Dates: start: 2018
  2. HEROIN [Suspect]
     Active Substance: DIAMORPHINE
     Dosage: NON RENSEIGN?E
     Route: 042
  3. TABAC (POUDRE DE) [Suspect]
     Active Substance: TOBACCO LEAF
     Dosage: 16 PA

REACTIONS (11)
  - Pulmonary embolism [Recovering/Resolving]
  - Septic shock [Recovered/Resolved]
  - Endocarditis [Recovering/Resolving]
  - Splenic infarction [Recovering/Resolving]
  - Renal infarct [Recovering/Resolving]
  - Abscess limb [Recovered/Resolved]
  - Intentional product use issue [Unknown]
  - Pneumonia [Recovering/Resolving]
  - Bursitis [Recovering/Resolving]
  - Drug abuse [Not Recovered/Not Resolved]
  - Lung abscess [Recovering/Resolving]

NARRATIVE: CASE EVENT DATE: 2018
